FAERS Safety Report 23859348 (Version 2)
Quarter: 2024Q2

REPORT INFORMATION
  Report Type: Spontaneous
  Country: US (occurrence: US)
  Receive Date: 20240515
  Receipt Date: 20240621
  Transmission Date: 20240715
  Serious: No
  Sender: FDA-Public Use
  Company Number: US-BIOVITRUM-2024-US-007162

PATIENT
  Age: 74 Year
  Sex: Female

DRUGS (1)
  1. VONJO [Suspect]
     Active Substance: PACRITINIB
     Indication: Thrombocytopenia
     Dosage: TWICE DAILY
     Route: 048
     Dates: start: 202404, end: 202406

REACTIONS (4)
  - White blood cell count decreased [Unknown]
  - Laboratory test abnormal [Unknown]
  - Off label use [Recovered/Resolved]
  - Full blood count decreased [Unknown]

NARRATIVE: CASE EVENT DATE: 20240401
